FAERS Safety Report 17568649 (Version 1)
Quarter: 2020Q1

REPORT INFORMATION
  Report Type: Spontaneous
  Country: IR (occurrence: IR)
  Receive Date: 20200320
  Receipt Date: 20200320
  Transmission Date: 20200409
  Serious: Yes (Hospitalization, Other)
  Sender: FDA-Public Use
  Company Number: IR-BAXTER-2020BAX006353

PATIENT
  Age: 9 Year
  Sex: Female
  Weight: 19 kg

DRUGS (3)
  1. ETOPOSIDE. [Suspect]
     Active Substance: ETOPOSIDE
     Indication: NEUROBLASTOMA
     Dosage: FOR 2 HOURS ON DAY 1 AND 3
     Route: 042
  2. DOXIL [Suspect]
     Active Substance: DOXORUBICIN HYDROCHLORIDE
     Indication: NEUROBLASTOMA
     Dosage: FOR 4 HOURS ON DAY 01 ON EACH COURSE, ONGOING
     Route: 042
  3. PANOBINOSTAT [Suspect]
     Active Substance: PANOBINOSTAT
     Indication: NEUROBLASTOMA
     Dosage: (MONDAY, WEDNESDAY, AND FRIDAY) DAYS 1, 3, 5, 8, 10, 12 FOR TWO WEEKS AND THEN ONE WEEK OFF
     Route: 048

REACTIONS (3)
  - Vomiting [Recovering/Resolving]
  - Bone marrow failure [Unknown]
  - Febrile neutropenia [Unknown]
